FAERS Safety Report 8910813 (Version 2)
Quarter: 2013Q2

REPORT INFORMATION
  Report Type: Spontaneous
  Country: US (occurrence: None)
  Receive Date: 20120507
  Receipt Date: 20121106
  Transmission Date: 20140414
  Serious: Yes (Other)
  Sender: FDA-Public Use
  Company Number: 1000028763

PATIENT
  Age: 73 Year
  Sex: Female

DRUGS (5)
  1. DALIRESP [Suspect]
     Indication: CHRONIC OBSTRUCTIVE PULMONARY DISEASE
     Route: 048
     Dates: start: 201112
  2. TRAZODONE (TRAZODONE) (TRAZODONE) [Concomitant]
  3. ATIVAN (LORAZEPAM) (LORAZEPAM) [Concomitant]
  4. LEXAPRO (ESCITALOPRAM OXALATE) (ESCITALOPRAM OXALATE) [Concomitant]
  5. VICODIN (ACETAMINOPHEN, HYDROCODONE) [Concomitant]

REACTIONS (1)
  - Diarrhoea [None]
